FAERS Safety Report 15150528 (Version 1)
Quarter: 2018Q3

REPORT INFORMATION
  Report Type: Spontaneous
  Country: JP (occurrence: JP)
  Receive Date: 20180716
  Receipt Date: 20180716
  Transmission Date: 20181010
  Serious: Yes (Death, Life-Threatening, Other)
  Sender: FDA-Public Use
  Company Number: US-ASTRAZENECA-2018SE87671

PATIENT
  Age: 67 Year
  Sex: Female
  Weight: 52 kg

DRUGS (29)
  1. NEXIUM [Suspect]
     Active Substance: ESOMEPRAZOLE MAGNESIUM
     Indication: OESOPHAGITIS
     Route: 048
     Dates: start: 20151124, end: 20160107
  2. JUZENTAIHOTO [Concomitant]
     Active Substance: HERBALS
     Indication: MALAISE
     Route: 048
     Dates: start: 20151110, end: 20160107
  3. PURSENNID [Concomitant]
     Active Substance: SENNOSIDES A AND B
     Indication: CONSTIPATION
     Route: 048
     Dates: start: 20151215, end: 20151228
  4. VALSARTAN. [Concomitant]
     Active Substance: VALSARTAN
     Indication: HYPERTENSION
     Route: 048
     Dates: start: 20151124, end: 20160107
  5. ALBUMIN [Concomitant]
     Active Substance: ALBUMIN HUMAN
     Indication: HYPOALBUMINAEMIA
     Route: 042
     Dates: start: 20151119, end: 20151121
  6. NEXIUM [Suspect]
     Active Substance: ESOMEPRAZOLE MAGNESIUM
     Indication: GASTRIC PH DECREASED
     Route: 048
     Dates: start: 20151124, end: 20160107
  7. ALDACTONE A [Suspect]
     Active Substance: SPIRONOLACTONE
     Indication: OEDEMA
     Route: 048
     Dates: start: 20151124, end: 20151207
  8. JUZENTAIHOTO [Concomitant]
     Active Substance: HERBALS
     Indication: MUSCULAR WEAKNESS
     Route: 048
     Dates: start: 20151110, end: 20160107
  9. NORVASC [Concomitant]
     Active Substance: AMLODIPINE BESYLATE
     Indication: HYPERTENSION
     Route: 048
     Dates: start: 20151124, end: 20160104
  10. LOXONIN [Concomitant]
     Active Substance: LOXOPROFEN SODIUM
     Indication: PAIN MANAGEMENT
     Dosage: 60.0MG AS REQUIRED
     Route: 048
     Dates: start: 20151215
  11. METGLUCO [Concomitant]
     Active Substance: METFORMIN HYDROCHLORIDE
     Indication: DIABETES MELLITUS
     Route: 048
     Dates: start: 20151110, end: 20160107
  12. REBAMIPIDE [Concomitant]
     Active Substance: REBAMIPIDE
     Indication: GASTRITIS
     Route: 048
     Dates: start: 20151121, end: 20151122
  13. LASIX [Concomitant]
     Active Substance: FUROSEMIDE
     Indication: DIURETIC THERAPY
     Route: 048
  14. REBAMIPIDE [Concomitant]
     Active Substance: REBAMIPIDE
     Indication: GASTRITIS
     Route: 048
  15. LASIX [Concomitant]
     Active Substance: FUROSEMIDE
     Indication: DIURETIC THERAPY
     Route: 048
     Dates: start: 20151124, end: 20151207
  16. SENNOSIDE [Concomitant]
     Active Substance: SENNOSIDES
     Indication: CONSTIPATION
     Route: 048
     Dates: start: 20151228, end: 20160108
  17. CISPLATIN. [Concomitant]
     Active Substance: CISPLATIN
     Indication: HEPATIC ANGIOSARCOMA
     Route: 042
     Dates: start: 20151117, end: 20151208
  18. REBAMIPIDE [Concomitant]
     Active Substance: REBAMIPIDE
     Indication: OESOPHAGITIS
     Route: 048
     Dates: start: 20151121, end: 20151122
  19. REBAMIPIDE [Concomitant]
     Active Substance: REBAMIPIDE
     Indication: OESOPHAGITIS
     Route: 048
  20. LOXOPROFEN [Concomitant]
     Active Substance: LOXOPROFEN
     Indication: PAIN MANAGEMENT
     Route: 048
     Dates: start: 20151121, end: 20151122
  21. ALOXI [Concomitant]
     Active Substance: PALONOSETRON HYDROCHLORIDE
     Indication: HEPATIC ANGIOSARCOMA
     Route: 042
     Dates: start: 20151117, end: 20151208
  22. DECADRON [Concomitant]
     Active Substance: DEXAMETHASONE
     Indication: HEPATIC ANGIOSARCOMA
     Route: 042
     Dates: start: 20151117, end: 20151208
  23. PACLITAXEL. [Concomitant]
     Active Substance: PACLITAXEL
     Indication: HEPATIC ANGIOSARCOMA
     Route: 042
     Dates: start: 20151124, end: 20151124
  24. DIOVAN [Suspect]
     Active Substance: VALSARTAN
     Indication: HYPERTENSION
     Route: 048
     Dates: start: 20151124, end: 20160104
  25. JUZENTAIHOTO [Concomitant]
     Active Substance: HERBALS
     Indication: DECREASED APPETITE
     Route: 048
     Dates: start: 20151110, end: 20160107
  26. LASIX [Concomitant]
     Active Substance: FUROSEMIDE
     Indication: HYPERTENSION
     Route: 048
     Dates: start: 20151124, end: 20151207
  27. AMLODIPINE [Concomitant]
     Active Substance: AMLODIPINE BESYLATE
     Indication: HYPERTENSION
     Route: 048
     Dates: start: 20151225, end: 20160107
  28. CELECOX [Suspect]
     Active Substance: CELECOXIB
     Indication: PAIN MANAGEMENT
     Route: 048
     Dates: start: 20151110, end: 20160107
  29. LASIX [Concomitant]
     Active Substance: FUROSEMIDE
     Indication: HYPERTENSION
     Route: 048

REACTIONS (9)
  - Multiple organ dysfunction syndrome [Fatal]
  - Toxic epidermal necrolysis [Fatal]
  - Off label use [Unknown]
  - Malignant neoplasm progression [Not Recovered/Not Resolved]
  - Blood pressure decreased [Unknown]
  - Eating disorder [Unknown]
  - Hypovitaminosis [Not Recovered/Not Resolved]
  - Fall [Unknown]
  - Malnutrition [Unknown]

NARRATIVE: CASE EVENT DATE: 20151110
